FAERS Safety Report 8287370-1 (Version None)
Quarter: 2012Q2

REPORT INFORMATION
  Report Type: 
  Country: None (occurrence: None)
  Receive Date: 20120416
  Receipt Date: 20120410
  Transmission Date: 20120825
  Serious: No
  Sender: FDA-Public Use
  Company Number: US-PFIZER INC-2012056962

PATIENT
  Sex: Male
  Weight: 48.526 kg

DRUGS (1)
  1. GENOTROPIN [Suspect]
     Indication: GROWTH HORMONE DEFICIENCY
     Dosage: 2.0 MG, 1X/DAY
     Route: 058
     Dates: start: 20110225

REACTIONS (2)
  - INJECTION SITE REACTION [None]
  - INJECTION SITE RASH [None]
